FAERS Safety Report 20658139 (Version 1)
Quarter: 2022Q1

REPORT INFORMATION
  Report Type: Spontaneous
  Country: ES (occurrence: ES)
  Receive Date: 20220331
  Receipt Date: 20220331
  Transmission Date: 20220424
  Serious: Yes (Death, Life-Threatening, Hospitalization, Other)
  Sender: FDA-Public Use
  Company Number: ES-MLMSERVICE-20220322-3446716-1

PATIENT
  Age: 32 Year
  Sex: Male

DRUGS (1)
  1. CISPLATIN [Suspect]
     Active Substance: CISPLATIN
     Indication: Tonsil cancer

REACTIONS (13)
  - Enteritis [Fatal]
  - Pneumonia [Fatal]
  - Enteritis [Fatal]
  - Hypotension [Fatal]
  - Fungal infection [Fatal]
  - Mucosal inflammation [Fatal]
  - Thrombocytopenia [Fatal]
  - Febrile neutropenia [Fatal]
  - Renal impairment [Fatal]
  - Intestinal obstruction [Fatal]
  - Venoocclusive liver disease [Fatal]
  - Cholestasis [Fatal]
  - Off label use [Unknown]
